FAERS Safety Report 8333130-2 (Version None)
Quarter: 2012Q2

REPORT INFORMATION
  Report Type: 
  Country: None (occurrence: None)
  Receive Date: 20120503
  Receipt Date: 20120426
  Transmission Date: 20120825
  Serious: Yes (Other)
  Sender: FDA-Public Use
  Company Number: US-JNJFOC-20120412556

PATIENT
  Sex: Male
  Weight: 117.94 kg

DRUGS (3)
  1. STELARA [Suspect]
     Indication: PSORIASIS
     Route: 058
     Dates: start: 20100101, end: 20110101
  2. KLONOPIN [Concomitant]
     Indication: SLEEP APNOEA SYNDROME
  3. NEURONTIN [Concomitant]
     Indication: SLEEP APNOEA SYNDROME

REACTIONS (1)
  - HYPERTHYROIDISM [None]
